FAERS Safety Report 5973879-X (Version None)
Quarter: 2008Q4

REPORT INFORMATION
  Report Type: 
  Country: None (occurrence: None)
  Receive Date: 20081201
  Receipt Date: 20080919
  Transmission Date: 20090506
  Serious: No
  Sender: FDA-Public Use
  Company Number: US-AMGEN-KDL308359

PATIENT
  Sex: Female
  Weight: 54.6 kg

DRUGS (4)
  1. ENBREL [Suspect]
     Indication: JUVENILE ARTHRITIS
     Route: 058
     Dates: start: 20040804, end: 20080918
  2. MULTI-VITAMINS [Concomitant]
  3. ALEVE [Concomitant]
     Route: 048
  4. CLARITIN-D [Concomitant]

REACTIONS (5)
  - HYPOAESTHESIA [None]
  - INTERVERTEBRAL DISC DISORDER [None]
  - JOINT SWELLING [None]
  - NASOPHARYNGITIS [None]
  - PARAESTHESIA [None]
